FAERS Safety Report 10344521 (Version 2)
Quarter: 2014Q3

REPORT INFORMATION
  Report Type: Spontaneous
  Country: IT (occurrence: IT)
  Receive Date: 20140728
  Receipt Date: 20140728
  Transmission Date: 20150326
  Serious: Yes (Hospitalization)
  Sender: FDA-Public Use
  Company Number: 2014SP001026

PATIENT
  Age: 73 Year
  Sex: Male
  Weight: 73 kg

DRUGS (5)
  1. LEVACT [Concomitant]
     Active Substance: BENDAMUSTINE HYDROCHLORIDE
     Route: 042
  2. CYTARABINE. [Suspect]
     Active Substance: CYTARABINE
     Indication: MANTLE CELL LYMPHOMA REFRACTORY
     Route: 042
     Dates: start: 20130522
  3. LEVOXACIN [Concomitant]
     Active Substance: LEVOFLOXACIN
     Route: 048
  4. TALAVIR [Concomitant]
     Active Substance: VALACYCLOVIR HYDROCHLORIDE
     Route: 048
  5. MABTHERA [Concomitant]
     Active Substance: RITUXIMAB
     Route: 042

REACTIONS (2)
  - Renal failure acute [Recovered/Resolved]
  - Off label use [Unknown]

NARRATIVE: CASE EVENT DATE: 20130603
